FAERS Safety Report 18487026 (Version 6)
Quarter: 2020Q4

REPORT INFORMATION
  Report Type: Spontaneous
  Country: CA (occurrence: CA)
  Receive Date: 20201110
  Receipt Date: 20201223
  Transmission Date: 20210114
  Serious: Yes (Other)
  Sender: FDA-Public Use
  Company Number: CA-AKCEA THERAPEUTICS-2020IS001275

PATIENT
  Age: 72 Year
  Sex: Female
  Weight: 54.14 kg

DRUGS (8)
  1. ISSD (INTEGRATED SYRINGE SAFETY DEVICE) [Suspect]
     Active Substance: DEVICE
  2. TEVA-FUROSEMIDE [Concomitant]
     Active Substance: FUROSEMIDE
     Route: 065
  3. GOLDEN EYE OINTMENT [Concomitant]
     Route: 065
  4. TEGSEDI [Suspect]
     Active Substance: INOTERSEN SODIUM
     Indication: HEREDITARY NEUROPATHIC AMYLOIDOSIS
     Route: 058
     Dates: start: 20200409
  5. PREDNISONE. [Suspect]
     Active Substance: PREDNISONE
     Route: 065
  6. LEVOTHYROXINE. [Concomitant]
     Active Substance: LEVOTHYROXINE
     Route: 065
  7. TEGSEDI [Suspect]
     Active Substance: INOTERSEN SODIUM
     Route: 058
  8. PREDNISONE. [Suspect]
     Active Substance: PREDNISONE
     Route: 065
     Dates: start: 202010

REACTIONS (35)
  - Lymphocyte count decreased [Recovered/Resolved]
  - Back pain [Unknown]
  - Abnormal sensation in eye [Unknown]
  - Injection site erythema [Unknown]
  - Dry eye [Not Recovered/Not Resolved]
  - Headache [Unknown]
  - Pain in extremity [Unknown]
  - Monocyte count decreased [Recovered/Resolved]
  - Platelet count decreased [Recovered/Resolved]
  - Fatigue [Unknown]
  - Dysphonia [Not Recovered/Not Resolved]
  - Dry mouth [Not Recovered/Not Resolved]
  - Basophil count increased [Recovered/Resolved]
  - Urine protein/creatinine ratio increased [Not Recovered/Not Resolved]
  - Haematocrit increased [Recovered/Resolved]
  - Pollakiuria [Unknown]
  - Injection site rash [Unknown]
  - Night sweats [Not Recovered/Not Resolved]
  - Constipation [Unknown]
  - Poor venous access [Unknown]
  - Injection site pain [Unknown]
  - Rash [Recovered/Resolved]
  - Oropharyngeal pain [Not Recovered/Not Resolved]
  - Creatinine urine decreased [Not Recovered/Not Resolved]
  - Haemoglobin increased [Recovered/Resolved]
  - Water pollution [Unknown]
  - Facial paralysis [Recovering/Resolving]
  - Vitamin A decreased [Not Recovered/Not Resolved]
  - Visual impairment [Unknown]
  - Asthenopia [Not Recovered/Not Resolved]
  - Blood pressure increased [Unknown]
  - Swelling face [Not Recovered/Not Resolved]
  - Trichorrhexis [Not Recovered/Not Resolved]
  - Limb operation [Unknown]
  - Glomerular filtration rate decreased [Unknown]

NARRATIVE: CASE EVENT DATE: 20200625
